FAERS Safety Report 5296319-5 (Version None)
Quarter: 2007Q2

REPORT INFORMATION
  Report Type: 
  Country: None (occurrence: None)
  Receive Date: 20070413
  Receipt Date: 20070404
  Transmission Date: 20071010
  Serious: Yes (Other)
  Sender: FDA-Public Use
  Company Number: US-ELI_LILLY_AND_COMPANY-US_0508121345

PATIENT
  Age: 44 Year
  Sex: Male
  Weight: 83.63 kg

DRUGS (10)
  1. ZYPREXA [Suspect]
     Indication: NEUROTRANSMITTER LEVEL ALTERED
     Dosage: 20 MG, EACH EVENING
     Route: 048
     Dates: start: 19991018, end: 20030221
  2. RISPERDAL [Concomitant]
     Dosage: 4 MG, 2/D
     Route: 048
     Dates: start: 20030221
  3. PERPHENAZINE [Concomitant]
     Dosage: UNK, UNKNOWN
     Dates: start: 20040108, end: 20050610
  4. PENTA-TRIAMTERENE HCTZ [Concomitant]
     Dosage: UNK, UNKNOWN
     Dates: start: 20030806, end: 20050620
  5. LOPID [Concomitant]
     Dosage: 600 MG, UNKNOWN
  6. FLUOXETINE [Concomitant]
     Dosage: UNK, UNKNOWN
  7. ZOLOFT [Concomitant]
     Dosage: 50 MG, EACH EVENING
     Route: 048
  8. TRAZODONE HCL [Concomitant]
     Dosage: UNK, UNKNOWN
  9. ZESTRIL [Concomitant]
     Dosage: 20 MG, UNKNOWN
     Route: 048
  10. ALLEGRA [Concomitant]
     Dosage: 60 MG, 2/D

REACTIONS (2)
  - DIABETES MELLITUS NON-INSULIN-DEPENDENT [None]
  - OBESITY [None]
